FAERS Safety Report 6967585-2 (Version None)
Quarter: 2010Q3

REPORT INFORMATION
  Report Type: 
  Country: None (occurrence: None)
  Receive Date: 20100907
  Receipt Date: 20100826
  Transmission Date: 20110219
  Serious: Yes (Other)
  Sender: FDA-Public Use
  Company Number: ES-PFIZER INC-2010107991

PATIENT
  Age: 40 Year
  Sex: Male

DRUGS (6)
  1. VFEND [Suspect]
     Indication: FUNGAL INFECTION
     Dosage: 440 MG, 2X/DAY
     Route: 042
     Dates: start: 20100521, end: 20100521
  2. VFEND [Suspect]
     Dosage: 300 MG, 2X/DAY
     Route: 042
     Dates: start: 20100522, end: 20100531
  3. TYGACIL [Suspect]
     Indication: RESPIRATORY TRACT INFECTION
     Dosage: 50 MG, 2X/DAY
     Route: 042
     Dates: start: 20100510, end: 20100601
  4. SANDIMMUNE [Concomitant]
     Dosage: FROM 125 TO 220 MG, 2X/DAY
     Route: 042
     Dates: start: 20100502
  5. PANTOPRAZOLE SODIUM [Concomitant]
     Dosage: UNK
     Route: 042
     Dates: start: 20100513
  6. CLEXANE [Concomitant]
     Dosage: 40 MG
     Route: 058
     Dates: start: 20100513, end: 20100514

REACTIONS (3)
  - COAGULOPATHY [None]
  - CONDITION AGGRAVATED [None]
  - HYPOGLYCAEMIA [None]
